FAERS Safety Report 11126156 (Version 1)
Quarter: 2015Q2

REPORT INFORMATION
  Report Type: Spontaneous
  Country: PL (occurrence: PL)
  Receive Date: 20150520
  Receipt Date: 20150520
  Transmission Date: 20150821
  Serious: Yes (Death, Other)
  Sender: FDA-Public Use
  Company Number: PHHY2015PL056974

PATIENT
  Age: 32 Year
  Sex: Female

DRUGS (11)
  1. EVEROLIMUS [Concomitant]
     Active Substance: EVEROLIMUS
     Indication: CYTOMEGALOVIRUS INFECTION
     Route: 065
  2. LEFLUNOMIDE. [Suspect]
     Active Substance: LEFLUNOMIDE
     Indication: CYTOMEGALOVIRUS INFECTION
     Dosage: 20 MG, BID
     Route: 065
  3. GANCICLOVIR. [Suspect]
     Active Substance: GANCICLOVIR
     Dosage: 5 MG/KG, BID
     Route: 042
  4. VALGANCICLOVIR [Concomitant]
     Active Substance: VALGANCICLOVIR
     Indication: CYTOMEGALOVIRUS INFECTION
     Dosage: 900 MG, BID
     Route: 065
  5. CLARITHROMYCIN. [Concomitant]
     Active Substance: CLARITHROMYCIN
     Indication: CYTOMEGALOVIRUS INFECTION
     Route: 065
  6. TACROLIMUS. [Suspect]
     Active Substance: TACROLIMUS
     Indication: IMMUNOSUPPRESSANT DRUG THERAPY
  7. MEROPENEM. [Concomitant]
     Active Substance: MEROPENEM
     Indication: CYTOMEGALOVIRUS INFECTION
     Route: 065
  8. MYCOPHENOLATE MOFETIL. [Suspect]
     Active Substance: MYCOPHENOLATE MOFETIL
     Indication: PRODUCT USED FOR UNKNOWN INDICATION
     Route: 065
  9. GANCICLOVIR. [Suspect]
     Active Substance: GANCICLOVIR
     Indication: CYTOMEGALOVIRUS INFECTION
     Dosage: 7.5 MG/KG, BID
     Route: 042
  10. LENOGRASTIM [Concomitant]
     Active Substance: LENOGRASTIM
     Indication: CYTOMEGALOVIRUS INFECTION
     Route: 065
  11. CEFUROXIME. [Concomitant]
     Active Substance: CEFUROXIME
     Indication: CYTOMEGALOVIRUS INFECTION
     Dosage: 50 MG/L, UNK
     Route: 065

REACTIONS (17)
  - Thrombocytopenia [Unknown]
  - Cough [Unknown]
  - Toxicity to various agents [Unknown]
  - Pyrexia [Unknown]
  - Hypotension [Unknown]
  - Multi-organ failure [Fatal]
  - Abdominal pain [Unknown]
  - Polyuria [Unknown]
  - Seizure [Unknown]
  - Cholangitis [Unknown]
  - Liver injury [Unknown]
  - Leukopenia [Unknown]
  - Diabetes mellitus [Unknown]
  - Renal impairment [Unknown]
  - Hepatitis C RNA [Unknown]
  - Pancytopenia [Unknown]
  - Respiratory disorder [Unknown]
